FAERS Safety Report 19780458 (Version 3)
Quarter: 2021Q3

REPORT INFORMATION
  Report Type: Report from Study
  Country: FR (occurrence: FR)
  Receive Date: 20210902
  Receipt Date: 20210927
  Transmission Date: 20211014
  Serious: Yes (Death, Other)
  Sender: FDA-Public Use
  Company Number: FR-PFIZER INC-202101072790

PATIENT
  Age: 61 Year
  Sex: Male
  Weight: 68 kg

DRUGS (14)
  1. TIORFAN [Concomitant]
     Active Substance: RACECADOTRIL
     Dosage: UNK, 0.5 DAY
     Dates: start: 20191230, end: 20191231
  2. SPECIAFOLDINE [Concomitant]
     Active Substance: FOLIC ACID
     Dosage: UNK, 0.5 DAY
     Dates: start: 20191230, end: 20191231
  3. DAFALGAN [Concomitant]
     Active Substance: ACETAMINOPHEN
     Dosage: UNK
     Dates: start: 20191229
  4. ATEZOLIZUMAB. [Suspect]
     Active Substance: ATEZOLIZUMAB
     Indication: NON-SMALL CELL LUNG CANCER
     Dosage: UNK
     Route: 041
     Dates: start: 20190715
  5. ATEZOLIZUMAB. [Suspect]
     Active Substance: ATEZOLIZUMAB
     Dosage: 1200 MG, EVERY 3 WEEKS
     Route: 041
     Dates: start: 20191028
  6. ATEZOLIZUMAB. [Suspect]
     Active Substance: ATEZOLIZUMAB
     Dosage: 1200 MG, EVERY 3 WEEKS
     Route: 041
     Dates: start: 20191228
  7. PRIMPERAN [Concomitant]
     Active Substance: METOCLOPRAMIDE HYDROCHLORIDE
     Dosage: UNK, 1X/DAY
     Dates: start: 20191230, end: 20191231
  8. SMECTA [Concomitant]
     Active Substance: MONTMORILLONITE
     Dosage: UNK, 0.33 DAY
     Dates: start: 20191228, end: 20191230
  9. PANTOPRAZOLE [Concomitant]
     Active Substance: PANTOPRAZOLE
     Dosage: UNK
     Dates: start: 20191229
  10. BINOCRIT [Concomitant]
     Active Substance: ERYTHROPOIETIN
     Dosage: UNK, 1X/DAY
     Dates: start: 20200217
  11. BLOOD [Concomitant]
     Active Substance: WHOLE BLOOD
     Dosage: UNK, 1X/DAY
     Dates: start: 20191228, end: 20191228
  12. PACLITAXEL. [Suspect]
     Active Substance: PACLITAXEL
     Indication: NON-SMALL CELL LUNG CANCER
     Dosage: UNK
     Route: 065
     Dates: start: 20191118, end: 20200224
  13. CARBOPLATIN. [Suspect]
     Active Substance: CARBOPLATIN
     Indication: NON-SMALL CELL LUNG CANCER
     Dosage: UNK
     Route: 065
     Dates: start: 20191118, end: 20200224
  14. SERESTA [Concomitant]
     Active Substance: OXAZEPAM
     Dosage: UNK, 0.5 DAY
     Dates: start: 20191228, end: 20191231

REACTIONS (2)
  - Bone marrow failure [Not Recovered/Not Resolved]
  - Vomiting [Not Recovered/Not Resolved]

NARRATIVE: CASE EVENT DATE: 20191118
